FAERS Safety Report 15073582 (Version 2)
Quarter: 2019Q3

REPORT INFORMATION
  Report Type: Spontaneous
  Country: US (occurrence: US)
  Receive Date: 20180627
  Receipt Date: 20190906
  Transmission Date: 20191004
  Serious: No
  Sender: FDA-Public Use
  Company Number: US-GLENMARK PHARMACEUTICALS-2018GMK030613

PATIENT

DRUGS (2)
  1. ALCLOMETASONE DIPROPIONATE. [Suspect]
     Active Substance: ALCLOMETASONE DIPROPIONATE
     Indication: SKIN IRRITATION
     Dosage: UNK
     Route: 065
     Dates: start: 20190418, end: 20190419
  2. ALCLOMETASONE DIPROPIONATE. [Suspect]
     Active Substance: ALCLOMETASONE DIPROPIONATE
     Indication: ERYTHEMA
     Dosage: UNK
     Route: 065

REACTIONS (6)
  - Skin irritation [Unknown]
  - Skin exfoliation [Not Recovered/Not Resolved]
  - Application site erythema [Not Recovered/Not Resolved]
  - Application site burn [Not Recovered/Not Resolved]
  - Expired product administered [Unknown]
  - Application site rash [Unknown]

NARRATIVE: CASE EVENT DATE: 201904
